FAERS Safety Report 10804792 (Version 1)
Quarter: 2015Q1

REPORT INFORMATION
  Report Type: Report from Study
  Country: US (occurrence: US)
  Receive Date: 20150217
  Receipt Date: 20150217
  Transmission Date: 20150721
  Serious: No
  Sender: FDA-Public Use
  Company Number: US-ABBVIE-14K-163-1245770-00

PATIENT
  Age: 57 Year
  Sex: Female
  Weight: 68.1 kg

DRUGS (5)
  1. HUMIRA [Suspect]
     Active Substance: ADALIMUMAB
     Indication: PSORIASIS
     Dates: start: 201404
  2. HUMIRA [Suspect]
     Active Substance: ADALIMUMAB
     Indication: PSORIATIC ARTHROPATHY
  3. LOVASTATIN. [Concomitant]
     Active Substance: LOVASTATIN
     Indication: BLOOD CHOLESTEROL INCREASED
  4. LISINOPRIL. [Concomitant]
     Active Substance: LISINOPRIL
     Indication: HYPERTENSION
  5. HUMIRA [Suspect]
     Active Substance: ADALIMUMAB
     Indication: PSORIASIS
     Dates: start: 201404, end: 201404

REACTIONS (9)
  - Pollakiuria [Not Recovered/Not Resolved]
  - Cough [Recovering/Resolving]
  - Laryngitis [Recovering/Resolving]
  - Pollakiuria [Not Recovered/Not Resolved]
  - Dysphagia [Recovering/Resolving]
  - Urinary incontinence [Not Recovered/Not Resolved]
  - Diastasis recti abdominis [Not Recovered/Not Resolved]
  - Oropharyngeal pain [Recovering/Resolving]
  - Urethral discharge [Recovering/Resolving]

NARRATIVE: CASE EVENT DATE: 2014
